FAERS Safety Report 6676169-5 (Version None)
Quarter: 2010Q2

REPORT INFORMATION
  Report Type: 
  Country: None (occurrence: None)
  Receive Date: 20100412
  Receipt Date: 20100407
  Transmission Date: 20101027
  Serious: Yes (Life-Threatening, Hospitalization)
  Sender: FDA-Public Use
  Company Number: US-ASTRAZENECA-2010SE15159

PATIENT
  Age: 78 Year
  Sex: Female

DRUGS (6)
  1. FELODIPINE [Suspect]
     Indication: HYPERTENSION
     Route: 048
     Dates: end: 20100322
  2. TRAMADOL HCL [Suspect]
     Indication: BACK PAIN
     Route: 048
     Dates: end: 20100322
  3. ADCAL-D3 [Concomitant]
     Indication: MINERAL SUPPLEMENTATION
     Route: 048
  4. ALENDRONATE SODIUM [Concomitant]
     Indication: OSTEOPOROSIS
     Route: 048
  5. ATORVASTATIN CALCIUM [Concomitant]
     Indication: BLOOD CHOLESTEROL INCREASED
     Route: 048
  6. MIRTAZAPINE [Concomitant]
     Indication: DEPRESSION

REACTIONS (3)
  - DIZZINESS [None]
  - FALL [None]
  - ORTHOSTATIC HYPOTENSION [None]
